FAERS Safety Report 18649026 (Version 1)
Quarter: 2020Q4

REPORT INFORMATION
  Report Type: Spontaneous
  Country: FR (occurrence: FR)
  Receive Date: 20201222
  Receipt Date: 20201222
  Transmission Date: 20210114
  Serious: Yes (Other)
  Sender: FDA-Public Use
  Company Number: FR-MSNLABS-2020MSNLIT00426

PATIENT

DRUGS (2)
  1. CHLORMADINONE [Concomitant]
     Active Substance: CHLORMADINONE
     Indication: ENDOMETRIOSIS
     Dosage: SEVERAL YEARS
     Route: 065
  2. ROSUVASTATIN TABLETS 5 MG [Suspect]
     Active Substance: ROSUVASTATIN
     Indication: HYPERCHOLESTEROLAEMIA
     Route: 048
     Dates: start: 2014, end: 2018

REACTIONS (2)
  - Ulnar tunnel syndrome [Recovered/Resolved]
  - Mononeuropathy [Recovered/Resolved]

NARRATIVE: CASE EVENT DATE: 201810
